FAERS Safety Report 16336934 (Version 2)
Quarter: 2019Q2

REPORT INFORMATION
  Report Type: Spontaneous
  Country: BE (occurrence: BE)
  Receive Date: 20190521
  Receipt Date: 20190524
  Transmission Date: 20190711
  Serious: Yes (Disabling, Other)
  Sender: FDA-Public Use
  Company Number: BE-009507513-1905BEL009180

PATIENT
  Age: 82 Year
  Sex: Female
  Weight: 36 kg

DRUGS (2)
  1. KEYTRUDA [Suspect]
     Active Substance: PEMBROLIZUMAB
     Indication: METASTASES TO CENTRAL NERVOUS SYSTEM
  2. KEYTRUDA [Suspect]
     Active Substance: PEMBROLIZUMAB
     Indication: NON-SMALL CELL LUNG CANCER METASTATIC
     Dosage: 200 MILLIGRAM, CYCLICAL

REACTIONS (5)
  - Immune-mediated adverse reaction [Not Recovered/Not Resolved]
  - Intracranial pressure increased [Unknown]
  - Hypothyroidism [Unknown]
  - Feeling hot [Not Recovered/Not Resolved]
  - Eye pruritus [Not Recovered/Not Resolved]
